FAERS Safety Report 6153192-0 (Version None)
Quarter: 2009Q2

REPORT INFORMATION
  Report Type: 
  Country: None (occurrence: None)
  Receive Date: 20090413
  Receipt Date: 20090401
  Transmission Date: 20091009
  Serious: Yes (Hospitalization)
  Sender: FDA-Public Use
  Company Number: PHBS2008CN06301

PATIENT
  Age: 50 Year
  Sex: Male

DRUGS (5)
  1. CARBAMAZEPINE [Suspect]
     Indication: EPILEPSY
     Dosage: UNK
     Route: 048
     Dates: start: 19970101
  2. VALPROATE SODIUM [Interacting]
     Indication: EPILEPSY
  3. GLYCEROL 2.6% [Concomitant]
     Indication: HYDROCEPHALUS
     Dosage: UNK
  4. FRUCTOSE [Concomitant]
     Indication: HYDROCEPHALUS
     Dosage: UNK
  5. MANNITOL [Concomitant]
     Indication: HYDROCEPHALUS
     Dosage: UNK

REACTIONS (5)
  - DRUG INTERACTION [None]
  - GRAND MAL CONVULSION [None]
  - LUNG INFECTION [None]
  - MUSCULAR WEAKNESS [None]
  - PARTIAL SEIZURES [None]
